FAERS Safety Report 7099216-8 (Version None)
Quarter: 2010Q4

REPORT INFORMATION
  Report Type: 
  Country: None (occurrence: None)
  Receive Date: 20101112
  Receipt Date: 20080617
  Transmission Date: 20110411
  Serious: No
  Sender: FDA-Public Use
  Company Number: US-KINGPHARMUSA00001-K200800719

PATIENT
  Age: 50 Year
  Sex: Male
  Weight: 79.365 kg

DRUGS (4)
  1. SKELAXIN [Suspect]
     Indication: BACK PAIN
     Dosage: 800 MG, TID
     Route: 048
     Dates: start: 20080603, end: 20080606
  2. RESTORIL                           /00393701/ [Concomitant]
     Dosage: 7.5 MG, QD
  3. CELEBREX [Concomitant]
     Dosage: 200 MG, QD
  4. NORCO [Concomitant]
     Dosage: 10 MG, QD

REACTIONS (1)
  - PALPITATIONS [None]
